FAERS Safety Report 23629243 (Version 3)
Quarter: 2024Q2

REPORT INFORMATION
  Report Type: Spontaneous
  Country: US (occurrence: US)
  Receive Date: 20240313
  Receipt Date: 20240501
  Transmission Date: 20240716
  Serious: No
  Sender: FDA-Public Use
  Company Number: US-Calliditas-2024CAL00368

PATIENT
  Age: 22 Year
  Sex: Female

DRUGS (1)
  1. TARPEYO [Suspect]
     Active Substance: BUDESONIDE
     Indication: Haematuria
     Route: 048
     Dates: start: 20240216, end: 20240321

REACTIONS (4)
  - Product dose omission issue [Unknown]
  - Malaise [Unknown]
  - Vomiting [Unknown]
  - Illness [Unknown]
